FAERS Safety Report 6538003-3 (Version None)
Quarter: 2010Q1

REPORT INFORMATION
  Report Type: 
  Country: None (occurrence: None)
  Receive Date: 20100112
  Receipt Date: 20100112
  Transmission Date: 20100710
  Serious: Yes (Death)
  Sender: FDA-Public Use
  Company Number: None

PATIENT
  Sex: Male
  Weight: 60.9 kg

DRUGS (2)
  1. IRINOTECAN HCL [Suspect]
     Indication: PANCREATIC CARCINOMA METASTATIC
     Dosage: 160 MG EVER 2 WEEKS IV
     Route: 042
     Dates: start: 20091207, end: 20091207
  2. CETUXIMAB [Suspect]
     Indication: PANCREATIC CARCINOMA METASTATIC
     Dosage: 460 MG EVERY 2 WEEKS IV
     Route: 042
     Dates: start: 20091207, end: 20091207

REACTIONS (3)
  - GASTROINTESTINAL HAEMORRHAGE [None]
  - MALIGNANT NEOPLASM PROGRESSION [None]
  - PANCREATIC CARCINOMA METASTATIC [None]
